FAERS Safety Report 11112389 (Version 2)
Quarter: 2015Q2

REPORT INFORMATION
  Report Type: Spontaneous
  Country: BR (occurrence: BR)
  Receive Date: 20150514
  Receipt Date: 20150520
  Transmission Date: 20150821
  Serious: Yes (Other)
  Sender: FDA-Public Use
  Company Number: BR-BIOGENIDEC-2015BI061129

PATIENT
  Age: 51 Year
  Sex: Male

DRUGS (2)
  1. TYSABRI [Suspect]
     Active Substance: NATALIZUMAB
     Indication: IMMUNE RECONSTITUTION INFLAMMATORY SYNDROME
     Route: 042
  2. TYSABRI [Suspect]
     Active Substance: NATALIZUMAB
     Indication: NECROTISING RETINITIS
     Route: 042

REACTIONS (7)
  - Necrotising retinitis [Unknown]
  - Ocular hyperaemia [Unknown]
  - Visual acuity reduced [Unknown]
  - Vitreous floaters [Unknown]
  - Immune reconstitution inflammatory syndrome [Unknown]
  - Vitreous opacities [Unknown]
  - Ocular discomfort [Unknown]
